FAERS Safety Report 13591953 (Version 2)
Quarter: 2017Q2

REPORT INFORMATION
  Report Type: Report from Study
  Country: IT (occurrence: IT)
  Receive Date: 20170530
  Receipt Date: 20170601
  Transmission Date: 20170830
  Serious: Yes (Other)
  Sender: FDA-Public Use
  Company Number: IT-BRISTOL-MYERS SQUIBB COMPANY-BMS-2016-076906

PATIENT
  Age: 69 Year

DRUGS (1)
  1. NIVOLUMAB [Suspect]
     Active Substance: NIVOLUMAB
     Indication: NON-SMALL CELL LUNG CANCER
     Dosage: 3 MG/KG, UNK
     Route: 042

REACTIONS (7)
  - Gamma-glutamyltransferase increased [Recovering/Resolving]
  - Alanine aminotransferase increased [Recovering/Resolving]
  - Bile duct stenosis [Unknown]
  - Biliary dilatation [Recovering/Resolving]
  - Biliary tract dilation procedure [Unknown]
  - Endoscopic retrograde cholangiopancreatography [Unknown]
  - Metastases to liver [Unknown]

NARRATIVE: CASE EVENT DATE: 20160810
